FAERS Safety Report 8841045 (Version 3)
Quarter: 2015Q2

REPORT INFORMATION
  Report Type: Spontaneous
  Country: US (occurrence: US)
  Receive Date: 20121015
  Receipt Date: 20150607
  Transmission Date: 20150821
  Serious: Yes (Congenital Anomaly, Other)
  Sender: FDA-Public Use
  Company Number: US-ELI_LILLY_AND_COMPANY-US201210002363

PATIENT

DRUGS (2)
  1. PAMPRIN [Concomitant]
     Active Substance: IBUPROFEN
  2. PROZAC [Suspect]
     Active Substance: FLUOXETINE HYDROCHLORIDE
     Indication: PRODUCT USED FOR UNKNOWN INDICATION
     Dosage: 20 MG, QD
     Route: 064

REACTIONS (4)
  - Hand deformity [Unknown]
  - Transient tachypnoea of the newborn [Recovered/Resolved]
  - Macrosomia [Unknown]
  - Foetal exposure during pregnancy [Recovered/Resolved]
